FAERS Safety Report 8463644-6 (Version None)
Quarter: 2012Q2

REPORT INFORMATION
  Report Type: 
  Country: None (occurrence: None)
  Receive Date: 20120625
  Receipt Date: 20120615
  Transmission Date: 20120825
  Serious: Yes (Other)
  Sender: FDA-Public Use
  Company Number: CA-ROCHE-1079378

PATIENT
  Sex: Male
  Weight: 62.198 kg

DRUGS (9)
  1. EURO-FOLIC [Concomitant]
  2. CELEBREX [Concomitant]
  3. ZOLEDRONOC ACID [Concomitant]
  4. CAL-D3 [Concomitant]
  5. METHOTREXATE [Concomitant]
  6. MABTHERA [Suspect]
     Indication: RHEUMATOID ARTHRITIS
     Route: 042
     Dates: start: 20090110, end: 20110404
  7. VOLTAREN [Concomitant]
  8. PANTOPRAZOLE SODIUM [Concomitant]
  9. VIAGRA [Concomitant]

REACTIONS (1)
  - KNEE ARTHROPLASTY [None]
